FAERS Safety Report 7506026-3 (Version None)
Quarter: 2011Q2

REPORT INFORMATION
  Report Type: 
  Country: None (occurrence: None)
  Receive Date: 20110411
  Receipt Date: 20110103
  Transmission Date: 20111010
  Serious: Yes (Other)
  Sender: FDA-Public Use
  Company Number: DKLU1067440

PATIENT
  Age: 32 Year
  Sex: Female
  Weight: 61.2 kg

DRUGS (2)
  1. GEODON [Suspect]
     Indication: BIPOLAR DISORDER
     Dosage: 80 MG MILLIGRAM(S), 1 IN 1 D, ORAL; 60 MG MILLIGRAM(S), 1 IN 1 D, ORAL
     Route: 048
     Dates: start: 20080101
  2. COGENTIN [Suspect]
     Indication: TREMOR
     Dates: start: 20101217, end: 20101219

REACTIONS (5)
  - TARDIVE DYSKINESIA [None]
  - TREMOR [None]
  - DYSKINESIA [None]
  - VISION BLURRED [None]
  - DIZZINESS [None]
